FAERS Safety Report 8669596 (Version 2)
Quarter: 2013Q4

REPORT INFORMATION
  Report Type: Spontaneous
  Country: JP (occurrence: JP)
  Receive Date: 20120718
  Receipt Date: 20131101
  Transmission Date: 20140711
  Serious: Yes (Hospitalization)
  Sender: FDA-Public Use
  Company Number: JP-MSD-2012SP036727

PATIENT
  Age: 57 Year
  Sex: Male

DRUGS (8)
  1. MK-0000 (245) [Suspect]
     Dosage: 10 MG, UNK
     Route: 048
  2. MK-0000 (245) [Suspect]
     Route: 048
  3. DILTIAZEM [Concomitant]
     Indication: CARDIAC FAILURE
  4. MK-0805 [Concomitant]
     Indication: CARDIAC FAILURE
  5. AMIODARONE HYDROCHLORIDE [Concomitant]
     Indication: CARDIAC FAILURE
  6. AMIODARONE HYDROCHLORIDE [Concomitant]
     Indication: CARDIAC FAILURE
     Dosage: DAILY DOSAGE UNKNOWN
     Route: 065
  7. AMIODARONE HYDROCHLORIDE [Concomitant]
     Dosage: DAILY DOSAGE UNKNOWN
     Route: 065
  8. AMIODARONE HYDROCHLORIDE [Concomitant]
     Dosage: DAILY DOSAGE UNKNOWN
     Route: 041

REACTIONS (4)
  - Atrial fibrillation [Recovering/Resolving]
  - Ventricular tachycardia [Recovering/Resolving]
  - Electrocardiogram QT prolonged [Recovering/Resolving]
  - Syncope [Unknown]
